FAERS Safety Report 5911423-3 (Version None)
Quarter: 2008Q4

REPORT INFORMATION
  Report Type: 
  Country: None (occurrence: None)
  Receive Date: 20081002
  Receipt Date: 20080917
  Transmission Date: 20090506
  Serious: Yes (Other)
  Sender: FDA-Public Use
  Company Number: 033953

PATIENT
  Age: 62 Year
  Sex: Female
  Weight: 54 kg

DRUGS (4)
  1. TRAZODONE HCI        (TRAZODONE HYDROCHLORIDE) TABLET, 100MG [Suspect]
     Indication: DEPRESSION
     Dosage: 100 MG, QD, ORAL
     Route: 048
     Dates: start: 20080911
  2. TRAZODONE HCI        (TRAZODONE HYDROCHLORIDE) TABLET, 100MG [Suspect]
     Indication: SLEEP DISORDER THERAPY
     Dosage: 100 MG, QD, ORAL
     Route: 048
     Dates: start: 20080911
  3. MELOXICAM (MELOXICAM),15 MG [Concomitant]
  4. LISINOPRIL [Concomitant]

REACTIONS (9)
  - ALTERED VISUAL DEPTH PERCEPTION [None]
  - ASTHENIA [None]
  - DRY MOUTH [None]
  - DYSKINESIA [None]
  - HALLUCINATION [None]
  - HEADACHE [None]
  - MUSCULAR WEAKNESS [None]
  - NERVOUSNESS [None]
  - VISUAL IMPAIRMENT [None]
